FAERS Safety Report 9176627 (Version 1)
Quarter: 2013Q1

REPORT INFORMATION
  Report Type: Report from Study
  Country: US (occurrence: US)
  Receive Date: 20130321
  Receipt Date: 20130321
  Transmission Date: 20140127
  Serious: Yes (Life-Threatening, Hospitalization)
  Sender: FDA-Public Use
  Company Number: US-CELGENEUS-163-21660-12121487

PATIENT
  Age: 56 Year
  Sex: Male
  Weight: 88.6 kg

DRUGS (21)
  1. ABRAXANE [Suspect]
     Indication: COLORECTAL ADENOCARCINOMA
     Dosage: 260 MILLIGRAM/SQ. METER
     Route: 065
     Dates: start: 20121128, end: 20121228
  2. NEULASTA [Concomitant]
     Indication: PRODUCT USED FOR UNKNOWN INDICATION
     Dosage: 6 MILLIGRAM
     Route: 065
     Dates: start: 20121129
  3. ALPRAZOLAM [Concomitant]
     Indication: ANXIETY
     Dosage: 3 MILLIGRAM
     Route: 048
     Dates: start: 1996
  4. DIGOXIN [Concomitant]
     Indication: ATRIAL FIBRILLATION
     Dosage: .25 MILLIGRAM
     Route: 048
     Dates: start: 2004
  5. GABAPENTIN [Concomitant]
     Indication: NEUROPATHY PERIPHERAL
     Dosage: 600 MILLIGRAM
     Route: 048
     Dates: start: 2009
  6. METOPROLOL [Concomitant]
     Indication: HYPERTENSION
     Dosage: 50 MILLIGRAM
     Route: 048
     Dates: start: 2002
  7. PRADAXA [Concomitant]
     Indication: ANTICOAGULANT THERAPY
     Dosage: 150 MILLIGRAM
     Route: 048
     Dates: start: 2010
  8. PROTONIX [Concomitant]
     Indication: GASTRIC ULCER
     Dosage: 40 MILLIGRAM
     Route: 048
     Dates: start: 2009
  9. QUINAPRIL [Concomitant]
     Indication: HYPERTENSION
     Dosage: 10 MILLIGRAM
     Route: 048
     Dates: start: 2002
  10. SPIRONOLACTONE [Concomitant]
     Indication: LOCAL SWELLING
     Dosage: 50 MILLIGRAM
     Route: 048
     Dates: start: 2002
  11. ZOLPIDEM [Concomitant]
     Indication: INSOMNIA
     Dosage: 10 MILLIGRAM
     Route: 048
     Dates: start: 20121128
  12. IMODIUM [Concomitant]
     Indication: DIARRHOEA
     Dosage: 1
     Route: 048
     Dates: start: 20121128
  13. ONDANSETRON [Concomitant]
     Indication: NAUSEA
     Dosage: 8 MILLIGRAM
     Route: 048
     Dates: start: 20121128
  14. ONDANSETRON [Concomitant]
     Indication: VOMITING
  15. PROCHLORPERAZINE [Concomitant]
     Indication: NAUSEA
     Dosage: 10 MILLIGRAM
     Route: 048
     Dates: start: 20121128
  16. PROCHLORPERAZINE [Concomitant]
     Indication: VOMITING
  17. ALDACTONE [Concomitant]
     Indication: PRODUCT USED FOR UNKNOWN INDICATION
     Dosage: 50 MILLIGRAM
     Route: 065
  18. PHENERGAN [Concomitant]
     Indication: PRODUCT USED FOR UNKNOWN INDICATION
     Dosage: 25 MILLIGRAM
     Route: 065
  19. OXYCODONE [Concomitant]
     Indication: PRODUCT USED FOR UNKNOWN INDICATION
     Dosage: 5 MILLIGRAM
     Route: 065
  20. AMBIEN [Concomitant]
     Indication: PRODUCT USED FOR UNKNOWN INDICATION
     Dosage: 10 MILLIGRAM
     Route: 065
  21. ROXANOL [Concomitant]
     Indication: PRODUCT USED FOR UNKNOWN INDICATION
     Route: 065

REACTIONS (1)
  - Febrile neutropenia [Recovered/Resolved]
